FAERS Safety Report 11077322 (Version 2)
Quarter: 2015Q2

REPORT INFORMATION
  Report Type: Spontaneous
  Country: US (occurrence: US)
  Receive Date: 20150429
  Receipt Date: 20150512
  Transmission Date: 20150821
  Serious: No
  Sender: FDA-Public Use
  Company Number: US-009507513-1504USA018078

PATIENT
  Age: 16 Year
  Sex: Female
  Weight: 93.42 kg

DRUGS (3)
  1. SERTRALINE HYDROCHLORIDE. [Concomitant]
     Active Substance: SERTRALINE HYDROCHLORIDE
     Indication: DEPRESSION
  2. IMPLANON [Suspect]
     Active Substance: ETONOGESTREL
     Indication: CONTRACEPTION
     Dosage: IMPLANT IN LEFT ARM
     Route: 059
     Dates: start: 20150202
  3. RISPERDAL [Concomitant]
     Active Substance: RISPERIDONE
     Indication: ANGER

REACTIONS (3)
  - Malaise [Unknown]
  - Menstrual disorder [Not Recovered/Not Resolved]
  - Inappropriate schedule of drug administration [Unknown]

NARRATIVE: CASE EVENT DATE: 2015
